FAERS Safety Report 23968959 (Version 1)
Quarter: 2024Q2

REPORT INFORMATION
  Report Type: Spontaneous
  Country: US (occurrence: None)
  Receive Date: 20240612
  Receipt Date: 20240612
  Transmission Date: 20240715
  Serious: No
  Sender: FDA-Public Use
  Company Number: None

PATIENT
  Age: 42 Year
  Sex: Male
  Weight: 70.5 kg

DRUGS (1)
  1. CABOTEGRAVIR [Suspect]
     Active Substance: CABOTEGRAVIR
     Indication: Prophylaxis against HIV infection
     Dosage: 3 ML EVERY 60 DAYS INTRAMUSCULAR
     Route: 030
     Dates: start: 20240611

REACTIONS (5)
  - Headache [None]
  - Ocular discomfort [None]
  - Dizziness [None]
  - Dry mouth [None]
  - Dysgeusia [None]

NARRATIVE: CASE EVENT DATE: 20240611
